FAERS Safety Report 17426681 (Version 3)
Quarter: 2021Q3

REPORT INFORMATION
  Report Type: Spontaneous
  Country: FR (occurrence: FR)
  Receive Date: 20200218
  Receipt Date: 20210907
  Transmission Date: 20211014
  Serious: Yes (Other)
  Sender: FDA-Public Use
  Company Number: FR-TEVA-2020-FR-1187450

PATIENT
  Age: 48 Year
  Sex: Male

DRUGS (3)
  1. DEXAMBUTOL 500 MG, COMPRIME PELLICULE [Suspect]
     Active Substance: ETHAMBUTOL HYDROCHLORIDE
     Indication: ATYPICAL MYCOBACTERIAL INFECTION
     Dosage: 2 DOSAGE FORMS
     Route: 048
     Dates: start: 201904, end: 20210224
  2. RIFAMPICINE [Suspect]
     Active Substance: RIFAMPIN
     Indication: ATYPICAL MYCOBACTERIAL INFECTION
     Dosage: 600 MG
     Route: 048
     Dates: start: 201904, end: 20210224
  3. CLARITHROMYCINE [Suspect]
     Active Substance: CLARITHROMYCIN
     Indication: ATYPICAL MYCOBACTERIAL INFECTION
     Dosage: 1000 MG
     Route: 048
     Dates: start: 201904, end: 20210224

REACTIONS (1)
  - Colitis [Recovering/Resolving]

NARRATIVE: CASE EVENT DATE: 201910
